FAERS Safety Report 8914048 (Version 1)
Quarter: 2012Q4

REPORT INFORMATION
  Report Type: Spontaneous
  Country: US (occurrence: None)
  Receive Date: 20121114
  Receipt Date: 20121114
  Transmission Date: 20130627
  Serious: Yes (Hospitalization)
  Sender: FDA-Public Use
  Company Number: E7867-00253-SPO-US

PATIENT
  Age: 86 Year
  Sex: Male

DRUGS (1)
  1. GLIADEL [Suspect]
     Indication: GLIOBLASTOMA MULTIFORME
     Dosage: 4 WAFER, 4 in 1 D, Intrathecal
     Dates: start: 20120412, end: 20120412

REACTIONS (2)
  - Cerebral haemorrhage [None]
  - Procedural haemorrhage [None]
